FAERS Safety Report 8122397-1 (Version None)
Quarter: 2012Q1

REPORT INFORMATION
  Report Type: 
  Country: None (occurrence: None)
  Receive Date: 20120208
  Receipt Date: 20120202
  Transmission Date: 20120608
  Serious: Yes (Hospitalization)
  Sender: FDA-Public Use
  Company Number: US-GLAXOSMITHKLINE-A0964663A

PATIENT
  Age: 56 Year
  Sex: Female

DRUGS (10)
  1. TRACLEER [Concomitant]
  2. SPIRIVA [Concomitant]
  3. COUMADIN [Concomitant]
  4. FLOLAN [Suspect]
     Indication: PRODUCT USED FOR UNKNOWN INDICATION
     Dosage: 38NGKM UNKNOWN
     Dates: start: 20030313
  5. FUROSEMIDE [Concomitant]
  6. KLOR-CON [Concomitant]
  7. REVATIO [Concomitant]
  8. PREVACID [Concomitant]
  9. PROAIR HFA [Concomitant]
  10. AMIODARONE [Concomitant]

REACTIONS (2)
  - TRANSFUSION [None]
  - CARDIAC DISORDER [None]
